FAERS Safety Report 15930460 (Version 1)
Quarter: 2019Q1

REPORT INFORMATION
  Report Type: Spontaneous
  Country: CZ (occurrence: CZ)
  Receive Date: 20190207
  Receipt Date: 20190207
  Transmission Date: 20190417
  Serious: Yes (Other)
  Sender: FDA-Public Use
  Company Number: CZ-TEVA-2019-CZ-1009358

PATIENT
  Age: 60 Year
  Sex: Female

DRUGS (4)
  1. OXALIPLATIN. [Suspect]
     Active Substance: OXALIPLATIN
     Indication: COLORECTAL CANCER
     Dosage: PART OF FOLFOX REGIMEN; 12 CYCLES
     Route: 042
     Dates: start: 20150515, end: 2015
  2. FOLINIC ACID [Suspect]
     Active Substance: LEUCOVORIN
     Indication: COLORECTAL CANCER
     Dosage: PART OF FOLFOX REGIMEN; 12 CYCLES
     Route: 042
     Dates: start: 20150515, end: 2015
  3. FLUOROURACIL. [Suspect]
     Active Substance: FLUOROURACIL
     Dosage: FIRST LINE TREATMENT WITH FOLFOX
     Route: 065
     Dates: start: 20150515
  4. AVASTIN [Suspect]
     Active Substance: BEVACIZUMAB
     Dosage: FIRST LINE TREATMENT WITH FOLFOX
     Route: 065
     Dates: start: 20150515

REACTIONS (3)
  - Mucosal toxicity [Recovered/Resolved]
  - Neurotoxicity [Recovered/Resolved]
  - Toxicity to various agents [Recovered/Resolved]

NARRATIVE: CASE EVENT DATE: 2015
